FAERS Safety Report 9913980 (Version 1)
Quarter: 2014Q1

REPORT INFORMATION
  Report Type: Spontaneous
  Country: US (occurrence: None)
  Receive Date: 20140219
  Receipt Date: 20140219
  Transmission Date: 20141002
  Serious: Yes (Disabling)
  Sender: FDA-Public Use
  Company Number: None

PATIENT
  Age: 35 Year
  Sex: Female

DRUGS (1)
  1. CIPRO [Suspect]
     Indication: KIDNEY INFECTION
     Dosage: 2      TWICE DAILY TAKEN BY MOUTH
     Route: 048
     Dates: start: 19850206, end: 20120201

REACTIONS (5)
  - Tendon rupture [None]
  - Ligament rupture [None]
  - Nerve injury [None]
  - Pain in extremity [None]
  - Pain in extremity [None]
